FAERS Safety Report 5450244-5 (Version None)
Quarter: 2007Q3

REPORT INFORMATION
  Report Type: 
  Country: None (occurrence: None)
  Receive Date: 20070912
  Receipt Date: 20070831
  Transmission Date: 20080115
  Serious: Yes (Hospitalization)
  Sender: FDA-Public Use
  Company Number: FR-PFIZER INC-2006095759

PATIENT
  Sex: Female
  Weight: 64 kg

DRUGS (3)
  1. SU-011,248 [Suspect]
     Indication: GASTROINTESTINAL STROMAL TUMOUR
     Route: 048
     Dates: start: 20060227, end: 20060411
  2. SU-011,248 [Suspect]
     Route: 048
     Dates: start: 20060424, end: 20060509
  3. SU-011,248 [Suspect]
     Route: 048
     Dates: start: 20060510, end: 20060528

REACTIONS (2)
  - ANAEMIA [None]
  - OESOPHAGITIS HAEMORRHAGIC [None]
